FAERS Safety Report 5765253-6 (Version None)
Quarter: 2008Q2

REPORT INFORMATION
  Report Type: 
  Country: None (occurrence: None)
  Receive Date: 20080609
  Receipt Date: 20080609
  Transmission Date: 20081010
  Serious: Yes (Life-Threatening, Hospitalization)
  Sender: FDA-Public Use
  Company Number: None

PATIENT
  Sex: Female
  Weight: 108.8633 kg

DRUGS (2)
  1. EVISTA [Suspect]
     Indication: BREAST CANCER
     Dosage: 60 MG QD PO
     Route: 048
  2. EVISTA [Suspect]
     Indication: OSTEOPOROSIS PROPHYLAXIS
     Dosage: 60 MG QD PO
     Route: 048

REACTIONS (1)
  - PULMONARY EMBOLISM [None]
